FAERS Safety Report 5369823-9 (Version None)
Quarter: 2007Q2

REPORT INFORMATION
  Report Type: 
  Country: None (occurrence: None)
  Receive Date: 20070625
  Receipt Date: 20070618
  Transmission Date: 20071010
  Serious: Yes (Death, Hospitalization)
  Sender: FDA-Public Use
  Company Number: CN-GILEAD-2005-0008613

PATIENT
  Sex: Male

DRUGS (4)
  1. ADEFOVIR DIPIVOXIL KIT [Suspect]
     Indication: HEPATITIS B
     Route: 048
     Dates: start: 20030113, end: 20050729
  2. LAMIVUDINE [Concomitant]
     Indication: HEPATITIS B
     Dates: start: 20050729
  3. TIENAM [Concomitant]
     Indication: LUNG INFECTION
     Dates: start: 20050815
  4. VANCOMYCIN [Concomitant]
     Indication: LUNG INFECTION
     Dates: start: 20050815

REACTIONS (1)
  - ACUTE HEPATIC FAILURE [None]
